FAERS Safety Report 8176631-2 (Version None)
Quarter: 2012Q1

REPORT INFORMATION
  Report Type: 
  Country: None (occurrence: None)
  Receive Date: 20120301
  Receipt Date: 20120217
  Transmission Date: 20120608
  Serious: Yes (Life-Threatening, Hospitalization)
  Sender: FDA-Public Use
  Company Number: FR-SANOFI-AVENTIS-2012SA010648

PATIENT
  Age: 59 Year
  Sex: Male

DRUGS (6)
  1. NOVORAPID [Suspect]
     Route: 058
  2. DURAGESIC-100 [Suspect]
     Indication: PAIN
     Route: 062
     Dates: end: 20100330
  3. LANTUS [Suspect]
     Route: 058
  4. ACTIQ [Suspect]
     Indication: PAIN
     Route: 002
     Dates: end: 20100330
  5. ASPIRIN [Suspect]
     Route: 048
  6. CREON [Suspect]
     Indication: PANCREATITIS
     Route: 048

REACTIONS (1)
  - COMA [None]
